FAERS Safety Report 4883286-9 (Version None)
Quarter: 2006Q1

REPORT INFORMATION
  Report Type: 
  Country: None (occurrence: None)
  Receive Date: 20060117
  Receipt Date: 20060117
  Transmission Date: 20060701
  Serious: Yes (Disabling)
  Sender: FDA-Public Use
  Company Number: None

PATIENT
  Sex: Male
  Weight: 98 kg

DRUGS (1)
  1. HYDROCODONE/APAP/500MG [Suspect]
     Indication: PAIN
     Dosage: 1 TO 2 Q 4 HOURS PRN PO
     Route: 048
     Dates: start: 20050916, end: 20051006

REACTIONS (2)
  - COLD SWEAT [None]
  - DYSPNOEA [None]
